FAERS Safety Report 17140325 (Version 1)
Quarter: 2019Q4

REPORT INFORMATION
  Report Type: Spontaneous
  Country: US (occurrence: US)
  Receive Date: 20191211
  Receipt Date: 20191211
  Transmission Date: 20200122
  Serious: No
  Sender: FDA-Public Use
  Company Number: US-UCBSA-2016014806

PATIENT
  Age: 45 Year
  Sex: Female
  Weight: 95.25 kg

DRUGS (3)
  1. CIMZIA [Suspect]
     Active Substance: CERTOLIZUMAB PEGOL
     Indication: PSORIATIC ARTHROPATHY
     Dosage: 400 MG
     Dates: start: 20160416
  2. RESTASIS [Concomitant]
     Active Substance: CYCLOSPORINE
     Indication: MEIBOMIAN GLAND DYSFUNCTION
     Dosage: 1 GTT, 2X/DAY (BID), BOTH EYES
     Dates: start: 2015
  3. MTX [Concomitant]
     Active Substance: METHOTREXATE SODIUM
     Indication: PSORIATIC ARTHROPATHY
     Dosage: 20 MG, WEEKLY (QW)
     Dates: start: 2014

REACTIONS (5)
  - Malaise [Not Recovered/Not Resolved]
  - Pain [Not Recovered/Not Resolved]
  - Erythema [Not Recovered/Not Resolved]
  - Blister [Not Recovered/Not Resolved]
  - Pain in extremity [Unknown]

NARRATIVE: CASE EVENT DATE: 20160318
